FAERS Safety Report 18301506 (Version 1)
Quarter: 2020Q3

REPORT INFORMATION
  Report Type: Spontaneous
  Country: US (occurrence: US)
  Receive Date: 20200923
  Receipt Date: 20200923
  Transmission Date: 20201103
  Serious: No
  Sender: FDA-Public Use
  Company Number: None

PATIENT
  Age: 64 Year
  Sex: Male
  Weight: 72.57 kg

DRUGS (1)
  1. HEPARIN (HEPARIN NA 5000UNT/ML INJ) [Suspect]
     Active Substance: HEPARIN SODIUM
     Indication: PULMONARY EMBOLISM
     Route: 058
     Dates: start: 20200415, end: 20200417

REACTIONS (1)
  - Heparin-induced thrombocytopenia [None]

NARRATIVE: CASE EVENT DATE: 20200417
